FAERS Safety Report 12942111 (Version 2)
Quarter: 2016Q4

REPORT INFORMATION
  Report Type: Report from Study
  Country: US (occurrence: US)
  Receive Date: 20161114
  Receipt Date: 20161205
  Transmission Date: 20170207
  Serious: Yes (Hospitalization, Other)
  Sender: FDA-Public Use
  Company Number: US-GILEAD-2016-0242909

PATIENT
  Age: 9 Year
  Sex: Male

DRUGS (10)
  1. AZTREONAM LYSINE [Suspect]
     Active Substance: AZTREONAM LYSINE
     Indication: PSEUDOMONAS INFECTION
     Dosage: 75 MG, UNK
     Route: 055
     Dates: start: 2016
  2. TOBI [Concomitant]
     Active Substance: TOBRAMYCIN
  3. LISPRO INSULIN [Concomitant]
     Active Substance: INSULIN LISPRO
  4. AZTREONAM LYSINE [Suspect]
     Active Substance: AZTREONAM LYSINE
     Indication: CYSTIC FIBROSIS
     Dosage: 75 MG, UNK
     Route: 055
     Dates: start: 20121012, end: 2016
  5. CREON [Concomitant]
     Active Substance: PANCRELIPASE AMYLASE\PANCRELIPASE LIPASE\PANCRELIPASE PROTEASE
  6. PULMOZYME [Concomitant]
     Active Substance: DORNASE ALFA
  7. HYPERSAL [Concomitant]
  8. AZITHROMYCIN ANHYDROUS. [Concomitant]
     Active Substance: AZITHROMYCIN ANHYDROUS
  9. OMEPRAZOLE. [Concomitant]
     Active Substance: OMEPRAZOLE
  10. ALBUTEROL                          /00139501/ [Concomitant]
     Active Substance: ALBUTEROL

REACTIONS (1)
  - Bronchopulmonary aspergillosis allergic [Not Recovered/Not Resolved]

NARRATIVE: CASE EVENT DATE: 20161107
